FAERS Safety Report 13007763 (Version 1)
Quarter: 2016Q4

REPORT INFORMATION
  Report Type: Spontaneous
  Country: GB (occurrence: GB)
  Receive Date: 20161207
  Receipt Date: 20161207
  Transmission Date: 20170207
  Serious: Yes (Disabling)
  Sender: FDA-Public Use
  Company Number: PHHY2016GB163392

PATIENT
  Age: 46 Year
  Sex: Female
  Weight: 60.32 kg

DRUGS (2)
  1. NAPROXEN. [Concomitant]
     Active Substance: NAPROXEN
     Indication: PRODUCT USED FOR UNKNOWN INDICATION
     Route: 065
  2. TRAMADOL HYDROCHLORIDE. [Suspect]
     Active Substance: TRAMADOL HYDROCHLORIDE
     Indication: PAIN
     Dosage: 400 MG, QD
     Route: 048
     Dates: start: 20161003, end: 20161024

REACTIONS (5)
  - Hallucination, visual [Unknown]
  - Anxiety [Unknown]
  - Suicidal ideation [Recovered/Resolved with Sequelae]
  - Endocrine ophthalmopathy [Not Recovered/Not Resolved]
  - Agitation [Unknown]

NARRATIVE: CASE EVENT DATE: 201610
